FAERS Safety Report 18598747 (Version 1)
Quarter: 2020Q4

REPORT INFORMATION
  Report Type: Spontaneous
  Country: IR (occurrence: IR)
  Receive Date: 20201210
  Receipt Date: 20201210
  Transmission Date: 20210114
  Serious: Yes (Hospitalization, Other)
  Sender: FDA-Public Use
  Company Number: IR-LUPIN PHARMACEUTICALS INC.-2020-10028

PATIENT
  Age: 21 Year
  Sex: Male

DRUGS (2)
  1. ZOLPIDEM [Suspect]
     Active Substance: ZOLPIDEM TARTRATE
     Indication: MENTAL DISORDER
     Dosage: 10 MILLIGRAM, QD (LATER, HE GRADUALLY INCREASED HIS DAILY ZOLPIDEM CONSUMPTION)
     Route: 048
  2. ZOLPIDEM [Suspect]
     Active Substance: ZOLPIDEM TARTRATE
     Dosage: UNK (HE GRADUALLY INCREASED HIS DAILY ZOLPIDEM CONSUMPTION TO 70-80 MG DAILY)
     Route: 048

REACTIONS (5)
  - Tonic posturing [Recovered/Resolved]
  - Drug abuse [Unknown]
  - Drug dependence [Recovered/Resolved]
  - Intentional product use issue [Unknown]
  - Withdrawal syndrome [Unknown]
